APPROVED DRUG PRODUCT: MEGESTROL ACETATE
Active Ingredient: MEGESTROL ACETATE
Strength: 40MG
Dosage Form/Route: TABLET;ORAL
Application: A074621 | Product #001 | TE Code: AB
Applicant: BARR LABORATORIES INC
Approved: Nov 30, 1995 | RLD: No | RS: No | Type: RX